FAERS Safety Report 15221596 (Version 2)
Quarter: 2019Q1

REPORT INFORMATION
  Report Type: Spontaneous
  Country: US (occurrence: US)
  Receive Date: 20180731
  Receipt Date: 20190102
  Transmission Date: 20190417
  Serious: No
  Sender: FDA-Public Use
  Company Number: US-009507513-1807USA005988

PATIENT
  Age: 73 Year
  Sex: Female

DRUGS (2)
  1. KEYTRUDA [Suspect]
     Active Substance: PEMBROLIZUMAB
     Indication: METASTASES TO SPINE
  2. KEYTRUDA [Suspect]
     Active Substance: PEMBROLIZUMAB
     Indication: RENAL CANCER METASTATIC
     Dosage: 200 MG, EVERY 3 WEEKS
     Route: 042
     Dates: start: 20180521, end: 20180611

REACTIONS (6)
  - Nausea [Not Recovered/Not Resolved]
  - Weight decreased [Unknown]
  - Product use in unapproved indication [Unknown]
  - Vomiting [Recovered/Resolved]
  - Pruritus [Recovered/Resolved]
  - Adverse event [Unknown]

NARRATIVE: CASE EVENT DATE: 2018
